FAERS Safety Report 16596703 (Version 1)
Quarter: 2019Q3

REPORT INFORMATION
  Report Type: Spontaneous
  Country: JP (occurrence: JP)
  Receive Date: 20190719
  Receipt Date: 20190719
  Transmission Date: 20191004
  Serious: Yes (Life-Threatening, Hospitalization, Other)
  Sender: FDA-Public Use
  Company Number: JP-ACCORD-139035

PATIENT
  Age: 70 Year
  Sex: Female

DRUGS (2)
  1. AZULENE [Concomitant]
     Active Substance: AZULENE
     Indication: HEPATOCELLULAR CARCINOMA
     Dosage: USED AS A GARGLE FROM DAY 1 OF CHEMOTHERAPY.
     Route: 048
  2. FLUOROURACIL. [Suspect]
     Active Substance: FLUOROURACIL
     Indication: HEPATOCELLULAR CARCINOMA
     Dosage: INTERVAL, 28 D
     Route: 013

REACTIONS (5)
  - Impaired quality of life [Unknown]
  - Feeding disorder [Unknown]
  - Condition aggravated [Recovered/Resolved]
  - Oesophagitis [Unknown]
  - Stomatitis [Recovered/Resolved]
